FAERS Safety Report 23829479 (Version 1)
Quarter: 2024Q2

REPORT INFORMATION
  Report Type: Spontaneous
  Country: US (occurrence: None)
  Receive Date: 20240508
  Receipt Date: 20240508
  Transmission Date: 20240716
  Serious: No
  Sender: FDA-Public Use
  Company Number: 2024A106339

PATIENT
  Sex: Female

DRUGS (1)
  1. SYMBICORT [Suspect]
     Active Substance: BUDESONIDE\FORMOTEROL FUMARATE DIHYDRATE
     Dosage: DOSE UNKNOWN UNKNOWN
     Route: 055

REACTIONS (6)
  - Drug ineffective [Unknown]
  - Dysphonia [Unknown]
  - Device delivery system issue [Unknown]
  - Product dose omission issue [Unknown]
  - Dyspnoea [Unknown]
  - Product dispensing error [Unknown]
